FAERS Safety Report 15265944 (Version 2)
Quarter: 2018Q3

REPORT INFORMATION
  Report Type: Spontaneous
  Country: US (occurrence: US)
  Receive Date: 20180810
  Receipt Date: 20180924
  Transmission Date: 20181010
  Serious: No
  Sender: FDA-Public Use
  Company Number: US-GLAXOSMITHKLINE-US2018140060

PATIENT
  Sex: Female

DRUGS (1)
  1. ALLI [Suspect]
     Active Substance: ORLISTAT
     Indication: WEIGHT LOSS DIET
     Dosage: UNK

REACTIONS (5)
  - Product quality issue [Unknown]
  - Steatorrhoea [Unknown]
  - Treatment noncompliance [Unknown]
  - Drug ineffective [Unknown]
  - Abdominal discomfort [Unknown]
